FAERS Safety Report 19477740 (Version 1)
Quarter: 2021Q2

REPORT INFORMATION
  Report Type: Spontaneous
  Country: US (occurrence: US)
  Receive Date: 20210630
  Receipt Date: 20210630
  Transmission Date: 20210717
  Serious: No
  Sender: FDA-Public Use
  Company Number: US-KRAMERLABS-2020-US-020810

PATIENT
  Age: 73 Year
  Sex: Female
  Weight: 52.16 kg

DRUGS (3)
  1. VITAMIN K2 [Concomitant]
     Active Substance: MENAQUINONE 6
  2. VITAMIN D3 [Concomitant]
     Active Substance: CHOLECALCIFEROL
  3. NIZORAL A?D [Suspect]
     Active Substance: KETOCONAZOLE
     Indication: PRURITUS
     Dosage: WASHED HAIR ONCE
     Route: 061
     Dates: start: 20200916, end: 20200916

REACTIONS (1)
  - Rash papular [Recovering/Resolving]

NARRATIVE: CASE EVENT DATE: 20200916
